FAERS Safety Report 25450622 (Version 1)
Quarter: 2025Q2

REPORT INFORMATION
  Report Type: Spontaneous
  Country: US (occurrence: None)
  Receive Date: 20250618
  Receipt Date: 20250618
  Transmission Date: 20250717
  Serious: Yes (Hospitalization)
  Sender: FDA-CTU
  Company Number: None

PATIENT
  Age: 44 Year
  Sex: Female
  Weight: 104.8 kg

DRUGS (3)
  1. FLUOROURACIL [Suspect]
     Active Substance: FLUOROURACIL
  2. LEVOLEUCOVORIN CALCIUM [Suspect]
     Active Substance: LEVOLEUCOVORIN CALCIUM
  3. ELOXATIN [Suspect]
     Active Substance: OXALIPLATIN

REACTIONS (10)
  - Infusion related reaction [None]
  - Cough [None]
  - Nausea [None]
  - Dyspnoea [None]
  - Throat irritation [None]
  - Swollen tongue [None]
  - Mouth swelling [None]
  - Ear pain [None]
  - Hypophagia [None]
  - Peritonsillar abscess [None]

NARRATIVE: CASE EVENT DATE: 20250606
